FAERS Safety Report 12622016 (Version 3)
Quarter: 2016Q3

REPORT INFORMATION
  Report Type: Spontaneous
  Country: US (occurrence: US)
  Receive Date: 20160804
  Receipt Date: 20160920
  Transmission Date: 20161109
  Serious: No
  Sender: FDA-Public Use
  Company Number: US-PFIZER INC-2016348572

PATIENT
  Age: 56 Year
  Sex: Male
  Weight: 122 kg

DRUGS (6)
  1. FLECTOR [Suspect]
     Active Substance: DICLOFENAC EPOLAMINE
     Indication: PAIN
     Dosage: 1.3% PATCH APPLIED EVERY 12 HOURS
     Route: 062
     Dates: start: 20160709
  2. FLECTOR [Suspect]
     Active Substance: DICLOFENAC EPOLAMINE
     Dosage: UNK (FLECTOR 1.3 % 1 PATCH BID)
     Route: 062
     Dates: start: 20160525
  3. CYMBALTA [Concomitant]
     Active Substance: DULOXETINE HYDROCHLORIDE
     Dosage: 20 MG, 1X/DAY
     Route: 048
     Dates: start: 2014
  4. FENTANYL. [Concomitant]
     Active Substance: FENTANYL
     Dosage: 100MCG PATCH APPLIED EVERY 72 HOURS
  5. LYRICA [Concomitant]
     Active Substance: PREGABALIN
     Dosage: 50 MG, 3X/DAY
     Route: 048
     Dates: start: 2014
  6. HYDROCODONE [Concomitant]
     Active Substance: HYDROCODONE
     Dosage: 10/325MG TABLET AS NEEDED
     Route: 048
     Dates: start: 2010

REACTIONS (1)
  - Fatigue [Unknown]
